FAERS Safety Report 10018114 (Version 2)
Quarter: 2014Q1

REPORT INFORMATION
  Report Type: Spontaneous
  Country: US (occurrence: US)
  Receive Date: 20140318
  Receipt Date: 20140318
  Transmission Date: 20141002
  Serious: Yes (Death, Life-Threatening, Hospitalization)
  Sender: FDA-Public Use
  Company Number: US-BRISTOL-MYERS SQUIBB COMPANY-18988758

PATIENT
  Age: 57 Year
  Sex: Male

DRUGS (12)
  1. ERBITUX [Suspect]
     Indication: TONSIL CANCER
     Route: 042
     Dates: start: 20130313, end: 20130313
  2. AMIODARONE [Concomitant]
     Route: 048
  3. ASPIRIN [Concomitant]
     Route: 048
  4. CARVEDILOL [Concomitant]
     Route: 048
  5. DICLOFENAC [Concomitant]
     Route: 048
  6. FLUOXETINE [Concomitant]
     Route: 048
  7. GABAPENTINE [Concomitant]
     Route: 048
  8. LISINOPRIL + HCTZ [Concomitant]
     Dosage: 1DF = 10/12.5MG
     Route: 048
  9. PRAVASTATIN MR [Concomitant]
     Route: 048
  10. TAMSULOSIN [Concomitant]
     Route: 048
  11. ZOLPIDEM [Concomitant]
  12. DIPHENHYDRAMINE [Concomitant]
     Indication: PREMEDICATION

REACTIONS (1)
  - Infusion related reaction [Fatal]
